FAERS Safety Report 9374807 (Version 1)
Quarter: 2013Q2

REPORT INFORMATION
  Report Type: Spontaneous
  Country: US (occurrence: US)
  Receive Date: 20130628
  Receipt Date: 20130628
  Transmission Date: 20140414
  Serious: Yes (Other)
  Sender: FDA-Public Use
  Company Number: US-PFIZER INC-2013187938

PATIENT
  Age: 80 Year
  Sex: Female
  Weight: 175 kg

DRUGS (2)
  1. TOVIAZ [Suspect]
     Dosage: 8 MG, 1X/DAY
     Route: 048
  2. IMIPRAMINE [Suspect]
     Dosage: UNK

REACTIONS (4)
  - Fall [Unknown]
  - Neoplasm skin [Unknown]
  - Dry mouth [Unknown]
  - Weight decreased [Unknown]
